FAERS Safety Report 7447478-7 (Version None)
Quarter: 2011Q2

REPORT INFORMATION
  Report Type: 
  Country: None (occurrence: None)
  Receive Date: 20110429
  Receipt Date: 20110418
  Transmission Date: 20111010
  Serious: No
  Sender: FDA-Public Use
  Company Number: B0714877A

PATIENT
  Age: 5 Year

DRUGS (1)
  1. RELENZA [Suspect]
     Dosage: 40MG PER DAY
     Route: 055
     Dates: start: 20110416, end: 20110416

REACTIONS (2)
  - OVERDOSE [None]
  - NO ADVERSE EVENT [None]
